FAERS Safety Report 10675290 (Version 1)
Quarter: 2014Q4

REPORT INFORMATION
  Report Type: Spontaneous
  Country: US (occurrence: US)
  Receive Date: 20141224
  Receipt Date: 20141224
  Transmission Date: 20150529
  Serious: Yes (Death)
  Sender: FDA-Public Use
  Company Number: US-JNJFOC-20141215220

PATIENT
  Age: 93 Year
  Sex: Female

DRUGS (1)
  1. NEOSPORIN PLUS PAIN RELIEF MAXIMUM STRENGTH FIRST AID ANTIBIOTIC PAIN RELIEVING [Suspect]
     Active Substance: BACITRACIN ZINC\NEOMYCIN SULFATE\POLYMYXIN B SULFATE\PRAMOXINE HYDROCHLORIDE
     Indication: SCRATCH
     Route: 061
     Dates: start: 201402

REACTIONS (2)
  - Death [Fatal]
  - Expired product administered [Unknown]

NARRATIVE: CASE EVENT DATE: 201402
